FAERS Safety Report 23184812 (Version 1)
Quarter: 2023Q4

REPORT INFORMATION
  Report Type: Spontaneous
  Country: AT (occurrence: AT)
  Receive Date: 20231115
  Receipt Date: 20231115
  Transmission Date: 20240109
  Serious: Yes (Hospitalization)
  Sender: FDA-Public Use
  Company Number: AT-BRISTOL-MYERS SQUIBB COMPANY-2023-159171

PATIENT
  Age: 76 Year
  Sex: Male

DRUGS (1)
  1. OPDUALAG [Suspect]
     Active Substance: NIVOLUMAB\RELATLIMAB-RMBW
     Indication: Malignant melanoma
     Dosage: DOSE : UNAVAILABLE;     FREQ : UNAVAILABLE
     Dates: start: 202302, end: 202307

REACTIONS (8)
  - Diarrhoea [Recovered/Resolved]
  - Hyponatraemia [Unknown]
  - Rash [Unknown]
  - Asthenia [Unknown]
  - General physical health deterioration [Recovering/Resolving]
  - Renal embolism [Unknown]
  - Infection [Unknown]
  - Decreased appetite [Unknown]

NARRATIVE: CASE EVENT DATE: 20230701
